FAERS Safety Report 10267093 (Version 1)
Quarter: 2014Q2

REPORT INFORMATION
  Report Type: Spontaneous
  Country: US (occurrence: None)
  Receive Date: 20140625
  Receipt Date: 20140625
  Transmission Date: 20141212
  Serious: No
  Sender: FDA-Public Use
  Company Number: None

PATIENT
  Age: 65 Year
  Sex: Female

DRUGS (2)
  1. EVISTA [Suspect]
     Indication: BREAST CANCER
     Dosage: 1 PILLL ONCE DAILY TAKEN BY MOUTH
     Route: 048
  2. EVISTA [Suspect]
     Indication: PROPHYLAXIS
     Dosage: 1 PILLL ONCE DAILY TAKEN BY MOUTH
     Route: 048

REACTIONS (3)
  - Heart rate irregular [None]
  - Palpitations [None]
  - Patent ductus arteriosus [None]
